FAERS Safety Report 17288471 (Version 1)
Quarter: 2020Q1

REPORT INFORMATION
  Report Type: Spontaneous
  Country: US (occurrence: US)
  Receive Date: 20200120
  Receipt Date: 20200120
  Transmission Date: 20200409
  Serious: Yes (Death, Life-Threatening, Hospitalization, Other)
  Sender: FDA-Public Use
  Company Number: US-EXELA PHARMA SCIENCES, LLC-2020EXL00001

PATIENT
  Age: 40 Year
  Sex: Female

DRUGS (2)
  1. MAGNESIUM SULFATE. [Suspect]
     Active Substance: MAGNESIUM SULFATE
     Indication: WEIGHT CONTROL
  2. MAGNESIUM SULFATE. [Suspect]
     Active Substance: MAGNESIUM SULFATE
     Indication: CONSTIPATION
     Dosage: (^A BOTTLE^)
     Route: 048

REACTIONS (5)
  - Seizure [Unknown]
  - Brain injury [Fatal]
  - Intentional overdose [Fatal]
  - Cardiac arrest [Recovering/Resolving]
  - Toxicity to various agents [Fatal]
